FAERS Safety Report 22704559 (Version 2)
Quarter: 2024Q3

REPORT INFORMATION
  Report Type: Spontaneous
  Country: IT (occurrence: IT)
  Receive Date: 20230714
  Receipt Date: 20240726
  Transmission Date: 20241016
  Serious: Yes (Hospitalization, Other)
  Sender: AUROBINDO
  Company Number: IT-MINISAL02-933556

PATIENT
  Age: 88 Year
  Sex: Female

DRUGS (5)
  1. QUETIAPINE [Suspect]
     Active Substance: QUETIAPINE
     Indication: Depression
     Dosage: 100 MILLIGRAM TOTAL (THE PATIENT TOOK SEDATIVES IN OVERDOSE. 4 CP OF QUETIAPINE OF 25 MG)
     Route: 048
     Dates: start: 20230618, end: 20230618
  2. RISPERDAL [Suspect]
     Active Substance: RISPERIDONE
     Indication: Dementia
     Dosage: 8 MILLIGRAM L (THE PATIENT TOOK 4 CAPSULES OF RISPERDAL 2 MG)
     Route: 048
     Dates: start: 20230618
  3. RISPERDAL [Suspect]
     Active Substance: RISPERIDONE
     Indication: Senile dementia
  4. TALOFEN [Concomitant]
     Active Substance: PROMAZINE HYDROCHLORIDE
     Indication: Product used for unknown indication
     Dosage: UNK
     Route: 065
  5. BISOPROLOL [Concomitant]
     Active Substance: BISOPROLOL\BISOPROLOL FUMARATE
     Indication: Product used for unknown indication
     Dosage: UNK
     Route: 065

REACTIONS (2)
  - Sopor [Recovering/Resolving]
  - Drug abuse [Recovering/Resolving]

NARRATIVE: CASE EVENT DATE: 20230619
